FAERS Safety Report 15744851 (Version 1)
Quarter: 2018Q4

REPORT INFORMATION
  Report Type: Spontaneous
  Country: DE (occurrence: DE)
  Receive Date: 20181220
  Receipt Date: 20181220
  Transmission Date: 20190205
  Serious: Yes (Other)
  Sender: FDA-Public Use
  Company Number: DE-MYLANLABS-2018M1092098

PATIENT
  Age: 54 Year
  Sex: Male

DRUGS (1)
  1. QUETIAPINE. [Suspect]
     Active Substance: QUETIAPINE
     Indication: BIPOLAR DISORDER
     Dosage: BEI ENTLASSUNG  0 - 0 - 100 - 100MG DANN 0 - 0 - 100 - 200MG
     Route: 048

REACTIONS (2)
  - Schizophrenia [Unknown]
  - Nightmare [Unknown]

NARRATIVE: CASE EVENT DATE: 2018
